FAERS Safety Report 10376572 (Version 1)
Quarter: 2014Q3

REPORT INFORMATION
  Report Type: Spontaneous
  Country: US (occurrence: None)
  Receive Date: 20140807
  Receipt Date: 20140807
  Transmission Date: 20150326
  Serious: Yes (Hospitalization)
  Sender: FDA-Public Use
  Company Number: SP08125

PATIENT
  Sex: Female

DRUGS (2)
  1. OPIODS [Concomitant]
     Active Substance: UNSPECIFIED INGREDIENT
  2. RELISTOR [Suspect]
     Active Substance: METHYLNALTREXONE BROMIDE
     Indication: CONSTIPATION
     Route: 058

REACTIONS (3)
  - Oedema peripheral [None]
  - Systemic lupus erythematosus [None]
  - Respiratory disorder [None]
